FAERS Safety Report 5513283-1 (Version None)
Quarter: 2007Q4

REPORT INFORMATION
  Report Type: 
  Country: None (occurrence: None)
  Receive Date: 20071112
  Receipt Date: 20071019
  Transmission Date: 20080405
  Serious: Yes (Other)
  Sender: FDA-Public Use
  Company Number: ES-GENENTECH-250587

PATIENT
  Age: 40 Year
  Sex: Female

DRUGS (2)
  1. AVASTIN [Suspect]
     Indication: COLORECTAL CANCER
     Dates: start: 20070618, end: 20070618
  2. ELOXATIN [Suspect]
     Indication: COLORECTAL CANCER
     Dates: start: 20070618, end: 20070618

REACTIONS (3)
  - DYSPNOEA [None]
  - PRURITUS [None]
  - THROAT TIGHTNESS [None]
